FAERS Safety Report 5021107-4 (Version None)
Quarter: 2006Q2

REPORT INFORMATION
  Report Type: 
  Country: None (occurrence: None)
  Receive Date: 20060608
  Receipt Date: 20060601
  Transmission Date: 20061013
  Serious: Yes (Hospitalization)
  Sender: FDA-Public Use
  Company Number: US-MERCK-0606USA00482

PATIENT
  Sex: Male

DRUGS (2)
  1. ZOCOR [Suspect]
     Indication: BLOOD CHOLESTEROL INCREASED
     Route: 048
     Dates: start: 20040101, end: 20050101
  2. VERAPAMIL MSD LP [Concomitant]
     Route: 065

REACTIONS (23)
  - ABDOMINAL PAIN UPPER [None]
  - ARTHRALGIA [None]
  - ASTHENIA [None]
  - BLADDER PAIN [None]
  - BLOOD CREATINE PHOSPHOKINASE INCREASED [None]
  - BLOOD GLUCOSE DECREASED [None]
  - CHROMATURIA [None]
  - DIZZINESS [None]
  - EAR PAIN [None]
  - EYE PAIN [None]
  - GASTRIC DISORDER [None]
  - HEART RATE INCREASED [None]
  - INSOMNIA [None]
  - MUSCLE SPASMS [None]
  - MYALGIA [None]
  - NAUSEA [None]
  - OXYGEN SATURATION DECREASED [None]
  - PANIC ATTACK [None]
  - RASH [None]
  - RENAL PAIN [None]
  - SHOULDER PAIN [None]
  - SKIN PAPILLOMA [None]
  - VISUAL ACUITY REDUCED [None]
